FAERS Safety Report 17676148 (Version 1)
Quarter: 2020Q2

REPORT INFORMATION
  Report Type: Report from Study
  Country: None (occurrence: US)
  Receive Date: 20200416
  Receipt Date: 20200416
  Transmission Date: 20200714
  Serious: Yes (Other)
  Sender: FDA-Public Use
  Company Number: US-ABBVIE-20K-163-3364734-00

PATIENT
  Age: 43 Year
  Sex: Female

DRUGS (1)
  1. HUMIRA [Suspect]
     Active Substance: ADALIMUMAB
     Indication: RHEUMATOID ARTHRITIS
     Route: 058

REACTIONS (7)
  - Vertigo [Recovering/Resolving]
  - Dizziness [Unknown]
  - Depression [Unknown]
  - Dyspnoea [Unknown]
  - Headache [Unknown]
  - Tachycardia [Unknown]
  - Diplopia [Unknown]

NARRATIVE: CASE EVENT DATE: 2020
